FAERS Safety Report 4674777-4 (Version None)
Quarter: 2005Q2

REPORT INFORMATION
  Report Type: 
  Country: None (occurrence: None)
  Receive Date: 20050526
  Receipt Date: 20050216
  Transmission Date: 20051028
  Serious: Yes (Death, Other)
  Sender: FDA-Public Use
  Company Number: 2005AP01170

PATIENT
  Age: 10391 Day
  Sex: Male
  Weight: 36.5 kg

DRUGS (15)
  1. DIPRIVAN [Suspect]
     Indication: STATUS EPILEPTICUS
     Route: 041
     Dates: start: 20030313, end: 20030313
  2. DIPRIVAN [Suspect]
     Route: 042
     Dates: start: 20030313, end: 20030313
  3. DIPRIVAN [Suspect]
     Route: 042
     Dates: start: 20030313, end: 20030313
  4. DIPRIVAN [Suspect]
     Route: 042
     Dates: start: 20030313, end: 20030314
  5. DIPRIVAN [Suspect]
     Route: 042
     Dates: start: 20030314, end: 20030316
  6. DORMICUM [Concomitant]
     Indication: STATUS EPILEPTICUS
     Dosage: DOSE RANGE 0.027 - 0.080 MG/KG/HR
     Route: 042
     Dates: start: 20030313, end: 20030314
  7. ALEVIATIN [Concomitant]
     Indication: STATUS EPILEPTICUS
     Route: 042
     Dates: start: 20030313, end: 20030315
  8. NOREPINEPHRINE [Concomitant]
     Indication: BLOOD PRESSURE DECREASED
     Dosage: DOSE RANGE 0.1 - 0.4 MCG/KG/MIN
     Route: 042
     Dates: start: 20030314, end: 20030316
  9. MEYLON [Concomitant]
     Dates: start: 20030316, end: 20030316
  10. BOSMIN [Concomitant]
     Indication: BLOOD PRESSURE DECREASED
     Route: 042
     Dates: start: 20030316, end: 20030316
  11. LANDSEN [Concomitant]
     Indication: EPILEPSY
     Route: 048
  12. EXCEGRAN [Concomitant]
     Indication: EPILEPSY
     Route: 048
  13. NELBON [Concomitant]
     Indication: EPILEPSY
     Route: 048
  14. EURODIN [Concomitant]
     Route: 048
  15. DEPAKENE [Concomitant]
     Indication: EPILEPSY
     Route: 048

REACTIONS (16)
  - ASCITES [None]
  - CARDIAC FAILURE [None]
  - CARDIOVASCULAR DISORDER [None]
  - HEPATIC CONGESTION [None]
  - HEPATIC STEATOSIS [None]
  - HYPERKALAEMIA [None]
  - METABOLIC ACIDOSIS [None]
  - PLEURAL EFFUSION [None]
  - PULMONARY OEDEMA [None]
  - RESPIRATORY DEPRESSION [None]
  - RHABDOMYOLYSIS [None]
  - SEPTIC SHOCK [None]
  - SHOCK [None]
  - VENTRICULAR ARRHYTHMIA [None]
  - VENTRICULAR FIBRILLATION [None]
  - VENTRICULAR TACHYCARDIA [None]
